FAERS Safety Report 5902664-X (Version None)
Quarter: 2008Q3

REPORT INFORMATION
  Report Type: 
  Country: None (occurrence: None)
  Receive Date: 20080929
  Receipt Date: 20080929
  Transmission Date: 20090109
  Serious: No
  Sender: FDA-Public Use
  Company Number: None

PATIENT
  Age: 64 Day
  Sex: Male
  Weight: 6.3504 kg

DRUGS (1)
  1. SUPRAX [Suspect]

REACTIONS (2)
  - MEDICATION ERROR [None]
  - UNEVALUABLE EVENT [None]
